FAERS Safety Report 5969382-3 (Version None)
Quarter: 2008Q4

REPORT INFORMATION
  Report Type: 
  Country: None (occurrence: None)
  Receive Date: 20081126
  Receipt Date: 20081119
  Transmission Date: 20090506
  Serious: Yes (Other)
  Sender: FDA-Public Use
  Company Number: US-WATSON-2008-06895

PATIENT
  Age: 86 Year
  Sex: Female

DRUGS (1)
  1. HALOPERIDOL LACTATE [Suspect]
     Indication: AGITATION
     Dosage: 2 MG, SINGLE
     Route: 042

REACTIONS (1)
  - ELECTROCARDIOGRAM QT PROLONGED [None]
